FAERS Safety Report 23520770 (Version 1)
Quarter: 2024Q1

REPORT INFORMATION
  Report Type: 
  Country: None (occurrence: None)
  Receive Date: 20240214
  Receipt Date: 20240214
  Transmission Date: 20240410
  Serious: No
  Sender: FDA-Public Use
  Company Number: DE-ROCHE-2456306

PATIENT
  Weight: 73 kg

DRUGS (22)
  1. OCREVUS [Suspect]
     Active Substance: OCRELIZUMAB
     Dates: start: 20180504, end: 20180518
  2. OCREVUS [Suspect]
     Active Substance: OCRELIZUMAB
     Dates: start: 20181106
  3. OCREVUS [Suspect]
     Active Substance: OCRELIZUMAB
     Dates: start: 20190516
  4. NITROXOLINE [Concomitant]
     Active Substance: NITROXOLINE
     Dates: start: 201804, end: 201804
  5. LEVOFLOXACIN [Concomitant]
     Active Substance: LEVOFLOXACIN
     Dates: start: 20180511, end: 20180515
  6. CHOLECALCIFEROL [Concomitant]
     Active Substance: CHOLECALCIFEROL
     Dates: start: 2013
  7. PFIZER-BIONTECH COVID-19 VACCINE [Concomitant]
     Active Substance: TOZINAMERAN
     Dates: start: 20210804, end: 20210804
  8. PFIZER-BIONTECH COVID-19 VACCINE [Concomitant]
     Active Substance: TOZINAMERAN
     Dates: start: 20210826, end: 20210826
  9. LOPERAMIDE [Concomitant]
     Active Substance: LOPERAMIDE
     Dosage: DEFINITION OF THE INTERVAL: AS REQUIRED
  10. MODERNA COVID-19 VACCINE [Concomitant]
     Active Substance: ELASOMERAN
     Dates: start: 20220112, end: 20220112
  11. FLUPIRTINE [Concomitant]
     Active Substance: FLUPIRTINE
     Dosage: DEFINITION OF THE INTERVAL: AS REQUIRED
     Dates: start: 201802, end: 20180315
  12. RANITIDINE [Concomitant]
     Active Substance: RANITIDINE
     Dates: start: 201805
  13. NEXIUM [Concomitant]
     Active Substance: ESOMEPRAZOLE MAGNESIUM
     Dosage: DEFINITION OF THE INTERVAL: AS REQUIRED
     Dates: start: 201803, end: 20180701
  14. OXYCODONE [Concomitant]
     Active Substance: OXYCODONE\OXYCODONE HYDROCHLORIDE
  15. ESTRADIOL [Concomitant]
     Active Substance: ESTRADIOL
     Dates: start: 2021
  16. METAMIZOLE [Concomitant]
     Active Substance: METAMIZOLE
  17. PREDNISOLONE [Concomitant]
     Active Substance: PREDNISOLONE
     Dates: start: 201805
  18. PANTOPRAZOLE [Concomitant]
     Active Substance: PANTOPRAZOLE
     Dates: start: 201805
  19. NABIXIMOLS [Concomitant]
     Active Substance: NABIXIMOLS
     Dates: start: 202112
  20. EBASTINE [Concomitant]
     Active Substance: EBASTINE
     Dates: start: 201805
  21. OPIPRAMOL HYDROCHLORIDE [Concomitant]
     Active Substance: OPIPRAMOL HYDROCHLORIDE
  22. NOVALGIN (METAMIZOLE SODIUM) [Concomitant]
     Active Substance: METAMIZOLE SODIUM

REACTIONS (5)
  - Urinary tract infection [None]
  - Urinary tract infection [None]
  - Oral herpes [None]
  - Abdominal pain [None]
  - Urinary tract infection [None]

NARRATIVE: CASE EVENT DATE: 20190503
